FAERS Safety Report 22177243 (Version 2)
Quarter: 2023Q2

REPORT INFORMATION
  Report Type: Report from Study
  Country: FR (occurrence: FR)
  Receive Date: 20230405
  Receipt Date: 20230424
  Transmission Date: 20230721
  Serious: Yes (Hospitalization)
  Sender: FDA-Public Use
  Company Number: FR-ALNYLAM PHARMACEUTICALS, INC.-ALN-2023-001480

PATIENT

DRUGS (2)
  1. GIVLAARI [Suspect]
     Active Substance: GIVOSIRAN SODIUM
     Indication: Porphyria acute
     Dosage: UNK
     Route: 065
     Dates: start: 202301
  2. GIVLAARI [Suspect]
     Active Substance: GIVOSIRAN SODIUM
     Dosage: UNK
     Route: 065
     Dates: start: 20230320

REACTIONS (3)
  - Porphyria acute [Unknown]
  - Bronchitis [Unknown]
  - Off label use [Unknown]

NARRATIVE: CASE EVENT DATE: 20230101
